FAERS Safety Report 8300369-1 (Version None)
Quarter: 2012Q2

REPORT INFORMATION
  Report Type: 
  Country: None (occurrence: None)
  Receive Date: 20120420
  Receipt Date: 20120412
  Transmission Date: 20120825
  Serious: Yes (Hospitalization)
  Sender: FDA-Public Use
  Company Number: CN-JNJFOC-20120109158

PATIENT
  Sex: Male
  Weight: 63 kg

DRUGS (3)
  1. GOLIMUMAB [Suspect]
     Route: 058
     Dates: start: 20110420
  2. GOLIMUMAB [Suspect]
     Indication: ANKYLOSING SPONDYLITIS
     Route: 058
     Dates: start: 20111202
  3. PLACEBO [Suspect]
     Indication: ANKYLOSING SPONDYLITIS
     Route: 058
     Dates: start: 20101229

REACTIONS (1)
  - TUBERCULOUS PLEURISY [None]
